FAERS Safety Report 9693802 (Version 3)
Quarter: 2013Q4

REPORT INFORMATION
  Report Type: Spontaneous
  Country: FR (occurrence: FR)
  Receive Date: 20131118
  Receipt Date: 20131119
  Transmission Date: 20140711
  Serious: No
  Sender: FDA-Public Use
  Company Number: FR-TEVA-392309ISR

PATIENT
  Age: 53 Year
  Sex: Female

DRUGS (4)
  1. COPAXONE [Suspect]
     Indication: MULTIPLE SCLEROSIS
     Dosage: 20 MILLIGRAM DAILY;
     Route: 058
     Dates: start: 201302
  2. MONO TILDIEM 300 [Concomitant]
     Indication: BLOOD PRESSURE
     Dosage: 300 MILLIGRAM DAILY; ON MORNING
  3. SEROPLEX [Concomitant]
     Indication: ANXIETY
     Dosage: 1 DOSAGE FORMS DAILY; ON MORNING
  4. FAMPYRA 10 MG [Concomitant]
     Indication: MULTIPLE SCLEROSIS
     Dosage: 10 MILLIGRAM DAILY; ON MORNING AND EVENING
     Dates: start: 20130513

REACTIONS (15)
  - Fatigue [Not Recovered/Not Resolved]
  - Injection site nodule [Unknown]
  - Inappropriate schedule of drug administration [Unknown]
  - Injection site pain [Unknown]
  - Injection site pruritus [Unknown]
  - Limb discomfort [Recovered/Resolved]
  - Malaise [Recovered/Resolved]
  - Dyspnoea [Recovered/Resolved]
  - Chest discomfort [Recovered/Resolved]
  - Masked facies [Recovered/Resolved]
  - Anaesthesia [Recovered/Resolved]
  - Drug administered at inappropriate site [Recovered/Resolved]
  - Skin exfoliation [Unknown]
  - Nasopharyngitis [Unknown]
  - Bronchitis [Unknown]
